FAERS Safety Report 4498536-0 (Version None)
Quarter: 2004Q4

REPORT INFORMATION
  Report Type: 
  Country: None (occurrence: None)
  Receive Date: 20041111
  Receipt Date: 20041102
  Transmission Date: 20050328
  Serious: Yes (Hospitalization)
  Sender: FDA-Public Use
  Company Number: US-JNJFOC-20040705800

PATIENT
  Sex: Female
  Weight: 93.44 kg

DRUGS (19)
  1. INFLIXIMAB [Suspect]
     Route: 042
  2. INFLIXIMAB [Suspect]
     Route: 042
  3. INFLIXIMAB [Suspect]
     Route: 042
  4. INFLIXIMAB [Suspect]
     Route: 042
  5. INFLIXIMAB [Suspect]
     Route: 042
  6. INFLIXIMAB [Suspect]
     Route: 042
  7. INFLIXIMAB [Suspect]
     Route: 042
  8. INFLIXIMAB [Suspect]
     Route: 042
  9. INFLIXIMAB [Suspect]
     Route: 042
  10. INFLIXIMAB [Suspect]
     Route: 042
  11. INFLIXIMAB [Suspect]
     Route: 042
  12. INFLIXIMAB [Suspect]
     Route: 042
  13. INFLIXIMAB [Suspect]
     Route: 042
  14. INFLIXIMAB [Suspect]
     Route: 042
  15. INFLIXIMAB [Suspect]
     Route: 042
  16. INFLIXIMAB [Suspect]
     Indication: CROHN'S DISEASE
     Route: 042
  17. MESALAMINE [Concomitant]
     Indication: CROHN'S DISEASE
  18. AZATHIOPRINE [Concomitant]
     Indication: CROHN'S DISEASE
  19. BUDESONIDE [Concomitant]
     Indication: CROHN'S DISEASE

REACTIONS (5)
  - HYPERCALCAEMIA [None]
  - LABORATORY TEST ABNORMAL [None]
  - NAUSEA [None]
  - PANCREATIC CARCINOMA METASTATIC [None]
  - VOMITING [None]
